FAERS Safety Report 5657805-9 (Version None)
Quarter: 2008Q1

REPORT INFORMATION
  Report Type: 
  Country: None (occurrence: None)
  Receive Date: 20080305
  Receipt Date: 20080219
  Transmission Date: 20080703
  Serious: Yes (Hospitalization)
  Sender: FDA-Public Use
  Company Number: DSA_31490_2008

PATIENT
  Sex: Female

DRUGS (7)
  1. LORAZEPAM [Suspect]
     Indication: ANXIETY
     Dosage: 1DF BID ORAL
     Route: 048
     Dates: start: 20040811
  2. ACC ACUTE (ACC - ACETYLCYSTEINE) (NOT SPECIFIED) [Suspect]
     Indication: PRODUCTIVE COUGH
     Dosage: 600 MG QD  ORAL
     Route: 048
     Dates: start: 20040812
  3. FORTECORTIN /00016001/ (FORTECORTIN DEXAMETHASONE) (NOT SPECIFIED [Suspect]
     Indication: METASTASES TO CENTRAL NERVOUS SYSTEM
     Dosage: 16 MG/32 MG ORAL
     Route: 048
     Dates: start: 20040809
  4. NEXIUM [Suspect]
     Indication: PROPHYLAXIS AGAINST GASTROINTESTINAL ULCER
     Dosage: 20 MG QD ORAL
     Route: 048
     Dates: start: 20040809
  5. ZENTROPIL /00017401/ (ZENTROPIL  - PHENYTOIN) [Suspect]
     Indication: CONVULSION
     Dosage: 100 MG/300 MG ORAL
     Route: 048
     Dates: start: 20040810
  6. FENISTIL [Concomitant]
  7. DIFLUCAN [Concomitant]

REACTIONS (1)
  - STEVENS-JOHNSON SYNDROME [None]
